FAERS Safety Report 4717031-4 (Version None)
Quarter: 2005Q3

REPORT INFORMATION
  Report Type: 
  Country: None (occurrence: None)
  Receive Date: 20050719
  Receipt Date: 20050708
  Transmission Date: 20060218
  Serious: Yes (Other)
  Sender: FDA-Public Use
  Company Number: US-ROCHE-410255

PATIENT
  Age: 26 Year
  Sex: Female
  Weight: 93 kg

DRUGS (11)
  1. ACCUTANE [Suspect]
     Route: 065
     Dates: start: 20030822, end: 20040215
  2. ORTHO TRI-CYCLEN [Concomitant]
  3. ZOLOFT [Concomitant]
  4. NEXIUM [Concomitant]
  5. ALBUTEROL SULFATE [Concomitant]
  6. NEURONTIN [Concomitant]
     Dates: start: 20021115
  7. ANUSOL [Concomitant]
  8. NASONEX [Concomitant]
  9. VALTREX [Concomitant]
  10. ALLEGRA [Concomitant]
     Dates: end: 20050623
  11. METAMUCIL [Concomitant]

REACTIONS (6)
  - BIPOLAR DISORDER [None]
  - BORDERLINE PERSONALITY DISORDER [None]
  - ECTOPIC PREGNANCY [None]
  - HYPERTRIGLYCERIDAEMIA [None]
  - MAJOR DEPRESSION [None]
  - OBSESSIVE-COMPULSIVE DISORDER [None]
